FAERS Safety Report 10609681 (Version 1)
Quarter: 2014Q4

REPORT INFORMATION
  Report Type: Spontaneous
  Country: US (occurrence: None)
  Receive Date: 20141124
  Receipt Date: 20141124
  Transmission Date: 20150529
  Serious: Yes (Death, Hospitalization)
  Sender: FDA-Public Use
  Company Number: 2014NUEUSA00393

PATIENT
  Age: 89 Year
  Sex: Male

DRUGS (2)
  1. NUEDEXTA [Suspect]
     Active Substance: DEXTROMETHORPHAN HYDROBROMIDE\QUINIDINE SULFATE
     Indication: DEMENTIA
     Dosage: 1 CAP, BID 7AM AND 5 PM
     Dates: start: 20140911, end: 20141006
  2. NUEDEXTA [Suspect]
     Active Substance: DEXTROMETHORPHAN HYDROBROMIDE\QUINIDINE SULFATE
     Indication: AFFECT LABILITY
     Dosage: 1 CAP, BID 7AM AND 5 PM
     Dates: start: 20140911, end: 20141006

REACTIONS (3)
  - Unresponsive to stimuli [None]
  - Fall [None]
  - Ventricular tachycardia [None]

NARRATIVE: CASE EVENT DATE: 20141006
